FAERS Safety Report 5309670-7 (Version None)
Quarter: 2007Q2

REPORT INFORMATION
  Report Type: 
  Country: None (occurrence: None)
  Receive Date: 20070427
  Receipt Date: 20061009
  Transmission Date: 20071010
  Serious: No
  Sender: FDA-Public Use
  Company Number: US-GLAXOSMITHKLINE-A0623004A

PATIENT
  Sex: Male

DRUGS (1)
  1. DEXEDRINE [Suspect]

REACTIONS (1)
  - DRUG INEFFECTIVE [None]
